FAERS Safety Report 12117974 (Version 1)
Quarter: 2016Q1

REPORT INFORMATION
  Report Type: Spontaneous
  Country: US (occurrence: US)
  Receive Date: 20160226
  Receipt Date: 20160226
  Transmission Date: 20160526
  Serious: No
  Sender: FDA-Public Use
  Company Number: US-BIOGEN-2016BI00170204

PATIENT
  Sex: Female

DRUGS (1)
  1. AVONEX [Suspect]
     Active Substance: INTERFERON BETA-1A
     Indication: MULTIPLE SCLEROSIS
     Dates: start: 20000101

REACTIONS (7)
  - Feeling abnormal [Unknown]
  - Amnesia [Unknown]
  - Loss of consciousness [Unknown]
  - Tremor [Unknown]
  - Mobility decreased [Unknown]
  - Incontinence [Unknown]
  - Multiple sclerosis [Unknown]
